FAERS Safety Report 7998362-1 (Version None)
Quarter: 2011Q4

REPORT INFORMATION
  Report Type: 
  Country: None (occurrence: None)
  Receive Date: 20111221
  Receipt Date: 20110817
  Transmission Date: 20120403
  Serious: No
  Sender: FDA-Public Use
  Company Number: US-GLAXOSMITHKLINE-A0941364A

PATIENT
  Age: 70 Year
  Sex: Female

DRUGS (6)
  1. TOPROL-XL [Concomitant]
  2. LIPITOR [Concomitant]
  3. JANUVIA [Concomitant]
  4. SYNTHROID [Concomitant]
  5. LOVAZA [Suspect]
     Indication: BLOOD TRIGLYCERIDES INCREASED
     Dosage: 2G TWICE PER DAY
     Route: 048
     Dates: start: 20080101, end: 20110601
  6. PLAVIX [Concomitant]

REACTIONS (2)
  - PRODUCT QUALITY ISSUE [None]
  - DYSPEPSIA [None]
